FAERS Safety Report 16706341 (Version 2)
Quarter: 2019Q4

REPORT INFORMATION
  Report Type: Spontaneous
  Country: NZ (occurrence: NZ)
  Receive Date: 20190815
  Receipt Date: 20191008
  Transmission Date: 20200122
  Serious: Yes (Hospitalization, Other)
  Sender: FDA-Public Use
  Company Number: NZ-PFIZER INC-2019345798

PATIENT
  Age: 52 Year
  Sex: Female
  Weight: 65 kg

DRUGS (10)
  1. ESTRADIOL. [Concomitant]
     Active Substance: ESTRADIOL
     Dosage: ONE PATCH (50MCG/24HR) APPLIED TWICE WEEKLY
     Route: 062
  2. LORAFIX [Concomitant]
     Dosage: 10 MG MANE, AS NEEDED
     Route: 048
  3. IBUPROFEN RELIEVE [Suspect]
     Active Substance: IBUPROFEN
     Indication: NECK PAIN
     Dosage: 400 MG, 3X/DAY (AS NEEDED)
     Route: 048
     Dates: end: 201812
  4. CANDESTAR [Concomitant]
     Indication: BLOOD PRESSURE MEASUREMENT
     Dosage: 8 MG, 1X/DAY
     Route: 048
     Dates: start: 20181210
  5. CELECOXIB. [Suspect]
     Active Substance: CELECOXIB
     Indication: MUSCULOSKELETAL STIFFNESS
  6. FLUOXETINE [Concomitant]
     Active Substance: FLUOXETINE HYDROCHLORIDE
     Indication: DEPRESSION
     Dosage: 20 MG, 1X/DAY MORNING
     Route: 048
     Dates: start: 20180420
  7. PROVERA [Concomitant]
     Active Substance: MEDROXYPROGESTERONE ACETATE
     Dosage: 2.5 MG, 1X/DAY MANE
  8. FLIXONASE [Concomitant]
     Active Substance: FLUTICASONE PROPIONATE
     Dosage: 2 SPRAYS INTO EACH NOSTRIL ONCE DAILY, AS NEEDED
  9. ZOPICLONE ACTAVIS [Concomitant]
     Active Substance: ZOPICLONE
     Dosage: 7.5 MG, 1X/DAY NOCTE
     Route: 048
  10. CELECOXIB. [Suspect]
     Active Substance: CELECOXIB
     Indication: NECK PAIN
     Dosage: 200 MG, 2X/DAY
     Route: 048
     Dates: start: 20181217, end: 20181224

REACTIONS (3)
  - Helicobacter infection [Unknown]
  - Gastric ulcer perforation [Recovered/Resolved]
  - Renal cyst [Unknown]

NARRATIVE: CASE EVENT DATE: 20181224
